FAERS Safety Report 7485992-9 (Version None)
Quarter: 2011Q2

REPORT INFORMATION
  Report Type: 
  Country: None (occurrence: None)
  Receive Date: 20110516
  Receipt Date: 20110516
  Transmission Date: 20111010
  Serious: Yes (Disabling)
  Sender: FDA-Public Use
  Company Number: None

PATIENT
  Sex: Female
  Weight: 81.8 kg

DRUGS (1)
  1. LEVAQUIN [Suspect]
     Indication: SINUSITIS
     Dosage: 250 MG 3X A DAY ORAL
     Route: 048
     Dates: start: 20110325, end: 20110502

REACTIONS (6)
  - ARTHRALGIA [None]
  - JOINT INJURY [None]
  - ABASIA [None]
  - MOVEMENT DISORDER [None]
  - SLEEP DISORDER [None]
  - PAIN [None]
